FAERS Safety Report 8114082-7 (Version None)
Quarter: 2012Q1

REPORT INFORMATION
  Report Type: 
  Country: None (occurrence: None)
  Receive Date: 20120203
  Receipt Date: 20120111
  Transmission Date: 20120608
  Serious: Yes (Hospitalization)
  Sender: FDA-Public Use
  Company Number: PHEH2012US002719

PATIENT
  Age: 21 Year
  Sex: Male

DRUGS (2)
  1. PULMOZYME [Concomitant]
  2. TOBRAMYCIN [Suspect]
     Indication: CYSTIC FIBROSIS
     Dosage: 300 MG, BID, 28 DYAS ON AND 28 DAYS OFF
     Dates: start: 20071219

REACTIONS (1)
  - INFECTIVE PULMONARY EXACERBATION OF CYSTIC FIBROSIS [None]
